FAERS Safety Report 13147628 (Version 2)
Quarter: 2017Q1

REPORT INFORMATION
  Report Type: Spontaneous
  Country: NG (occurrence: NG)
  Receive Date: 20170125
  Receipt Date: 20170210
  Transmission Date: 20170428
  Serious: Yes (Hospitalization, Other)
  Sender: FDA-Public Use
  Company Number: NG-UCBSA-2017002330

PATIENT
  Age: 40 Year
  Sex: Female

DRUGS (2)
  1. EPANUTIN [Concomitant]
     Active Substance: PHENYTOIN SODIUM
     Indication: EPILEPSY
     Dosage: UNK
  2. KEPPRA [Suspect]
     Active Substance: LEVETIRACETAM
     Indication: EPILEPSY
     Dosage: 250 MG, 2X/DAY (BID)
     Route: 048

REACTIONS (4)
  - Cardiac failure [Unknown]
  - Pericardial effusion [Unknown]
  - Asthenia [Unknown]
  - Abdominal pain [Unknown]
